FAERS Safety Report 6615512-X (Version None)
Quarter: 2010Q1

REPORT INFORMATION
  Report Type: 
  Country: None (occurrence: None)
  Receive Date: 20100305
  Receipt Date: 20100201
  Transmission Date: 20100710
  Serious: No
  Sender: FDA-Public Use
  Company Number: US-BAYER-201011574BCC

PATIENT
  Age: 18 Month
  Sex: Male
  Weight: 9.525 kg

DRUGS (1)
  1. ALEVE (CAPLET) [Suspect]
     Indication: ACCIDENTAL DRUG INTAKE BY CHILD
     Dosage: CHILD TOOK 1ALEVE AND A HALF AT THE MOST
     Route: 048
     Dates: start: 20100201

REACTIONS (1)
  - VOMITING [None]
